FAERS Safety Report 6892314-0 (Version None)
Quarter: 2010Q3

REPORT INFORMATION
  Report Type: 
  Country: None (occurrence: None)
  Receive Date: 20100731
  Receipt Date: 20080326
  Transmission Date: 20110219
  Serious: No
  Sender: FDA-Public Use
  Company Number: US-PFIZER INC-2008027478

PATIENT
  Sex: Female
  Weight: 77.272 kg

DRUGS (3)
  1. FLAGYL [Suspect]
     Indication: CLOSTRIDIAL INFECTION
     Dates: start: 20080320
  2. BACID [Concomitant]
  3. VALIUM [Concomitant]

REACTIONS (1)
  - CHROMATURIA [None]
